FAERS Safety Report 25735039 (Version 2)
Quarter: 2025Q4

REPORT INFORMATION
  Report Type: Spontaneous
  Country: GB (occurrence: GB)
  Receive Date: 20250828
  Receipt Date: 20251003
  Transmission Date: 20260118
  Serious: Yes (Death, Hospitalization, Other)
  Sender: MYLAN
  Company Number: GB-MYLANLABS-2025M1073387

PATIENT
  Sex: Male
  Weight: 98.3 kg

DRUGS (6)
  1. CLOZAPINE [Suspect]
     Active Substance: CLOZAPINE
     Indication: Dementia with Lewy bodies
     Dosage: 50 MILLIGRAM, QD (HE WAS LATER COMMENCED ON CLOZAPINE, WAS TITRATED TO 50MG / D)
     Dates: end: 20250825
  2. CLOZAPINE [Suspect]
     Active Substance: CLOZAPINE
     Indication: Hallucination, visual
  3. POLYETHYLENE GLYCOL 3350\POTASSIUM CHLORIDE\SODIUM BICARBONATE\SODIUM [Concomitant]
     Active Substance: POLYETHYLENE GLYCOL 3350\POTASSIUM CHLORIDE\SODIUM BICARBONATE\SODIUM CHLORIDE
     Dosage: UNK, PM (1 SACHET)
  4. SERTRALINE [Concomitant]
     Active Substance: SERTRALINE HYDROCHLORIDE
     Dosage: 150 MILLIGRAM, PM
  5. ACETAMINOPHEN [Concomitant]
     Active Substance: ACETAMINOPHEN
     Dosage: 1 GRAM, QID
  6. RIVASTIGMINE [Concomitant]
     Active Substance: RIVASTIGMINE
     Dosage: 13.3 MILLIGRAM, QD

REACTIONS (12)
  - Death [Fatal]
  - Urinary tract infection [Unknown]
  - Acute myocardial infarction [Unknown]
  - Hypotension [Unknown]
  - Bradycardia [Unknown]
  - Malaise [Unknown]
  - Blood lactic acid increased [Unknown]
  - C-reactive protein increased [Unknown]
  - Sepsis [Unknown]
  - General physical health deterioration [Unknown]
  - Asthenia [Unknown]
  - Off label use [Unknown]

NARRATIVE: CASE EVENT DATE: 20250825
